FAERS Safety Report 21323335 (Version 2)
Quarter: 2022Q3

REPORT INFORMATION
  Report Type: Report from Study
  Country: PR (occurrence: PR)
  Receive Date: 20220912
  Receipt Date: 20220926
  Transmission Date: 20221027
  Serious: Yes (Other)
  Sender: FDA-Public Use
  Company Number: PR-ABBVIE-22K-131-4535091-00

PATIENT
  Sex: Female
  Weight: 63.503 kg

DRUGS (5)
  1. HUMIRA [Suspect]
     Active Substance: ADALIMUMAB
     Indication: Rheumatoid arthritis
     Route: 058
     Dates: start: 20140116
  2. HUMIRA [Suspect]
     Active Substance: ADALIMUMAB
     Dosage: 40MG/0.4ML
     Route: 058
  3. TOZINAMERAN [Concomitant]
     Active Substance: TOZINAMERAN
     Indication: COVID-19 immunisation
     Dosage: 1 IN 1 ONCE FIRST DOSE
     Route: 030
     Dates: start: 20210227, end: 20210227
  4. TOZINAMERAN [Concomitant]
     Active Substance: TOZINAMERAN
     Indication: COVID-19 immunisation
     Dosage: 1 IN 1 ONCE SECOND DOSE
     Route: 030
     Dates: start: 20210320, end: 20210320
  5. TOZINAMERAN [Concomitant]
     Active Substance: TOZINAMERAN
     Indication: COVID-19 immunisation
     Dosage: 1 IN 1 ONCE THIRD DOSE
     Route: 030
     Dates: start: 20211130, end: 20211130

REACTIONS (8)
  - Asthenia [Unknown]
  - Catheterisation cardiac [Recovering/Resolving]
  - Malaise [Unknown]
  - Disorientation [Unknown]
  - Hypoaesthesia [Unknown]
  - Fall [Unknown]
  - Dehydration [Not Recovered/Not Resolved]
  - Abdominal pain [Not Recovered/Not Resolved]

NARRATIVE: CASE EVENT DATE: 20220101
